FAERS Safety Report 12129133 (Version 2)
Quarter: 2017Q1

REPORT INFORMATION
  Report Type: Other
  Country: US (occurrence: US)
  Receive Date: 20160229
  Receipt Date: 20170212
  Transmission Date: 20170428
  Serious: Yes (Other)
  Sender: FDA-Public Use
  Company Number: US-ACORDA-ACO_120007_2015

PATIENT
  Age: 52 Year
  Sex: Female

DRUGS (2)
  1. AMPYRA [Suspect]
     Active Substance: DALFAMPRIDINE
     Indication: MULTIPLE SCLEROSIS
     Dosage: 10 MG, BID
     Route: 048
     Dates: start: 201208
  2. AUBAGIO [Concomitant]
     Active Substance: TERIFLUNOMIDE
     Indication: PRODUCT USED FOR UNKNOWN INDICATION
     Dosage: UNK
     Route: 065

REACTIONS (10)
  - Condition aggravated [Unknown]
  - Spinal fracture [Unknown]
  - Amnesia [Unknown]
  - Insomnia [Unknown]
  - Peroneal nerve palsy [Unknown]
  - Hypersomnia [Unknown]
  - Road traffic accident [Unknown]
  - Drug dose omission [Unknown]
  - Road traffic accident [Unknown]
  - Pain [Unknown]

NARRATIVE: CASE EVENT DATE: 20151111
